FAERS Safety Report 5150864-1 (Version None)
Quarter: 2006Q4

REPORT INFORMATION
  Report Type: 
  Country: None (occurrence: None)
  Receive Date: 20061108
  Receipt Date: 20011115
  Transmission Date: 20070319
  Serious: Yes (Hospitalization)
  Sender: FDA-Public Use
  Company Number: 2006116832

PATIENT
  Age: 70 Year
  Sex: Male

DRUGS (6)
  1. IRINOTECAN HCL [Suspect]
     Indication: GASTRIC CANCER
     Dosage: 110 MG, CYCLICALLY, INTRAVENOUS
     Route: 042
  2. LEUCOVORIN CALCIUM [Suspect]
     Indication: GASTRIC CANCER
     Dosage: 850 MG, CYCLICALLY, INTRAVENOUS
     Route: 042
  3. FLUOROURACIL [Suspect]
     Indication: GASTRIC CANCER
     Dosage: 2350 MG, CYCLICALLY, INTRAVENOUS
     Route: 042
  4. ENSURE PLUS (CARBOHYDRATES NOS, ELECTROLYTES NOS, FATTY ACIDS NOS, MIN [Concomitant]
  5. FERROGRAD (FERROUS SULFATE EXSICCATED) [Concomitant]
  6. VALIUM [Concomitant]

REACTIONS (5)
  - ASTHENIA [None]
  - CHOLECYSTITIS ACUTE [None]
  - CHOLELITHIASIS [None]
  - NAUSEA [None]
  - PYREXIA [None]
